FAERS Safety Report 7748769-2 (Version None)
Quarter: 2011Q3

REPORT INFORMATION
  Report Type: 
  Country: None (occurrence: None)
  Receive Date: 20110913
  Receipt Date: 20110913
  Transmission Date: 20111222
  Serious: Yes (Other)
  Sender: FDA-Public Use
  Company Number: None

PATIENT
  Sex: Male
  Weight: 136.0791 kg

DRUGS (1)
  1. PERCOCET [Suspect]
     Dosage: 7.5/500MG 6-8 HRS ORAL
     Route: 048

REACTIONS (2)
  - URTICARIA [None]
  - SWELLING [None]
